FAERS Safety Report 5554261-6 (Version None)
Quarter: 2007Q4

REPORT INFORMATION
  Report Type: 
  Country: None (occurrence: None)
  Receive Date: 20071213
  Receipt Date: 20071207
  Transmission Date: 20080405
  Serious: Yes (Other)
  Sender: FDA-Public Use
  Company Number: A0697967A

PATIENT
  Age: 50 Year
  Sex: Male

DRUGS (6)
  1. WELLBUTRIN [Suspect]
     Indication: DEPRESSION
     Dosage: 150MG PER DAY
     Route: 048
     Dates: start: 20070109, end: 20070801
  2. ZOLOFT [Suspect]
  3. ATENOLOL [Suspect]
  4. NORVASC [Suspect]
  5. LISINOPRIL [Suspect]
  6. ALCOHOL [Concomitant]

REACTIONS (3)
  - INTENTIONAL OVERDOSE [None]
  - SELF-INJURIOUS IDEATION [None]
  - SUICIDAL IDEATION [None]
